FAERS Safety Report 9571596 (Version 2)
Quarter: 2013Q4

REPORT INFORMATION
  Report Type: Spontaneous
  Country: US (occurrence: US)
  Receive Date: 20131001
  Receipt Date: 20131022
  Transmission Date: 20140711
  Serious: Yes (Other)
  Sender: FDA-Public Use
  Company Number: US-UCBSA-098565

PATIENT
  Age: 75 Year
  Sex: Male
  Weight: 63.5 kg

DRUGS (2)
  1. ISMN ER [Suspect]
     Indication: OESOPHAGEAL SPASM
     Route: 048
     Dates: start: 20130914, end: 20130916
  2. ISMN ER [Suspect]
     Indication: ANGINA PECTORIS
     Route: 048
     Dates: start: 20130914, end: 20130916

REACTIONS (1)
  - Angina pectoris [Unknown]
